FAERS Safety Report 17816826 (Version 2)
Quarter: 2020Q2

REPORT INFORMATION
  Report Type: Report from Study
  Country: None (occurrence: GB)
  Receive Date: 20200522
  Receipt Date: 20200606
  Transmission Date: 20200714
  Serious: Yes (Hospitalization)
  Sender: FDA-Public Use
  Company Number: GB-ABBVIE-20K-167-3415774-00

PATIENT

DRUGS (3)
  1. VENETOCLAX. [Concomitant]
     Active Substance: VENETOCLAX
     Indication: PRODUCT USED FOR UNKNOWN INDICATION
  2. IMBRUVICA [Suspect]
     Active Substance: IBRUTINIB
     Indication: PRODUCT USED FOR UNKNOWN INDICATION
     Route: 065
  3. RITUXAN [Concomitant]
     Active Substance: RITUXIMAB
     Indication: PRODUCT USED FOR UNKNOWN INDICATION

REACTIONS (5)
  - Ulcer [Unknown]
  - Nausea [Unknown]
  - Drug ineffective [Unknown]
  - Pyrexia [Unknown]
  - Fatigue [Unknown]
